FAERS Safety Report 6038779-8 (Version None)
Quarter: 2009Q1

REPORT INFORMATION
  Report Type: 
  Country: None (occurrence: None)
  Receive Date: 20090115
  Receipt Date: 20080607
  Transmission Date: 20090719
  Serious: No
  Sender: FDA-Public Use
  Company Number: US-ABBOTT-08P-163-0451790-00

PATIENT
  Sex: Male

DRUGS (3)
  1. ADVICOR [Suspect]
     Indication: BLOOD CHOLESTEROL INCREASED
     Route: 048
     Dates: start: 20080201, end: 20080404
  2. OMEPRAZOLE [Concomitant]
     Indication: GASTRIC ULCER
     Route: 048
  3. ACETAMINOPHEN [Concomitant]
     Indication: MYALGIA
     Route: 048

REACTIONS (3)
  - ABASIA [None]
  - MYALGIA [None]
  - SYNOVIAL CYST [None]
